FAERS Safety Report 6896718-1 (Version None)
Quarter: 2010Q3

REPORT INFORMATION
  Report Type: 
  Country: None (occurrence: None)
  Receive Date: 20100802
  Receipt Date: 20070122
  Transmission Date: 20110219
  Serious: No
  Sender: FDA-Public Use
  Company Number: US-PFIZER INC-2007006113

PATIENT
  Sex: Female
  Weight: 67.13 kg

DRUGS (7)
  1. LYRICA [Suspect]
     Indication: FIBROMYALGIA
     Dates: start: 20060301, end: 20060601
  2. TYLENOL [Concomitant]
  3. ULTRAM [Concomitant]
  4. CYMBALTA [Concomitant]
  5. SALAGEN [Concomitant]
  6. CLONAZEPAM [Concomitant]
  7. ADIPEX [Concomitant]

REACTIONS (2)
  - NEURALGIA [None]
  - WEIGHT INCREASED [None]
